FAERS Safety Report 5383389-9 (Version None)
Quarter: 2007Q3

REPORT INFORMATION
  Report Type: 
  Country: None (occurrence: None)
  Receive Date: 20070710
  Receipt Date: 20070629
  Transmission Date: 20080115
  Serious: Yes (Other)
  Sender: FDA-Public Use
  Company Number: JP-PFIZER INC-2007054432

PATIENT
  Age: 78 Year
  Sex: Male

DRUGS (12)
  1. ALDACTONE [Suspect]
     Indication: PERICARDIAL EFFUSION
     Route: 048
     Dates: start: 20061204, end: 20070628
  2. ADALAT [Concomitant]
     Route: 048
  3. PLETAL [Concomitant]
     Route: 048
  4. BUFFERIN [Concomitant]
     Route: 048
  5. MAGNESIUM OXIDE [Concomitant]
     Route: 048
  6. GASTER [Concomitant]
     Route: 048
  7. GASTROM [Concomitant]
     Route: 048
  8. DEPAS [Concomitant]
     Route: 048
  9. FRANDOL [Concomitant]
     Route: 062
  10. HARNAL [Concomitant]
     Route: 048
  11. CYANOCOBALAMIN [Concomitant]
     Route: 048
  12. MUCODYNE [Concomitant]
     Route: 048

REACTIONS (4)
  - BREAST MASS [None]
  - BREAST PAIN [None]
  - GYNAECOMASTIA [None]
  - URINARY BLADDER HAEMORRHAGE [None]
